FAERS Safety Report 9465811 (Version 2)
Quarter: 2013Q3

REPORT INFORMATION
  Report Type: Spontaneous
  Country: US (occurrence: US)
  Receive Date: 20130820
  Receipt Date: 20130906
  Transmission Date: 20140515
  Serious: No
  Sender: FDA-Public Use
  Company Number: US-PFIZER INC-2013238754

PATIENT
  Sex: Female

DRUGS (1)
  1. ADVIL [Suspect]
     Indication: ARTHRITIS
     Dosage: 2 PILLS, THREE TIMES A DAY (TWO IN MORNING, TWO IN AFTERNOON AND TWO AT NIGHT)

REACTIONS (1)
  - Abdominal pain upper [Unknown]
